FAERS Safety Report 25981060 (Version 1)
Quarter: 2025Q4

REPORT INFORMATION
  Report Type: Spontaneous
  Country: US (occurrence: None)
  Receive Date: 20251030
  Receipt Date: 20251030
  Transmission Date: 20260117
  Serious: Yes (Other)
  Sender: FDA-CTU
  Company Number: None

PATIENT
  Age: 34 Year
  Sex: Female

DRUGS (10)
  1. NUCALA [Suspect]
     Active Substance: MEPOLIZUMAB
     Indication: Asthma
     Dosage: 100 MG/ML ONCE MONTHLY SUBCUTANEOUS
     Route: 058
     Dates: start: 20251001, end: 20251001
  2. albuterol 0.083% nebulizer solution [Concomitant]
  3. ipratropium/albuterol 0.5/3 inh sol [Concomitant]
  4. LORAZEPAM [Concomitant]
     Active Substance: LORAZEPAM
  5. MONTELUKAST SODIUM [Concomitant]
     Active Substance: MONTELUKAST SODIUM
  6. prazosin 1mg [Concomitant]
  7. Symbicort 160/4.5 mcg oral inhaler [Concomitant]
  8. TRAZODONE [Concomitant]
     Active Substance: TRAZODONE HYDROCHLORIDE
  9. vilazodone 40 mg [Concomitant]
  10. TRAZODONE [Concomitant]
     Active Substance: TRAZODONE HYDROCHLORIDE

REACTIONS (2)
  - Migraine [None]
  - Urticaria [None]

NARRATIVE: CASE EVENT DATE: 20251001
